FAERS Safety Report 9962241 (Version 1)
Quarter: 2014Q1

REPORT INFORMATION
  Report Type: Report from Study
  Country: US (occurrence: US)
  Receive Date: 20140305
  Receipt Date: 20140305
  Transmission Date: 20141002
  Serious: No
  Sender: FDA-Public Use
  Company Number: US-ABBVIE-13P-163-1114185-00

PATIENT
  Age: 58 Year
  Sex: Female

DRUGS (5)
  1. ASPIRIN [Concomitant]
     Indication: CARDIAC DISORDER
     Dosage: 325 MG DAILY
  2. LIPITOR [Concomitant]
     Indication: BLOOD CHOLESTEROL INCREASED
  3. TRAMADOL [Concomitant]
     Indication: PAIN
  4. HUMIRA [Suspect]
     Indication: ANKYLOSING SPONDYLITIS
     Route: 058
     Dates: start: 20130423
  5. LOSARTAN [Concomitant]
     Indication: HYPERTENSION
     Dosage: 100 MG DAILY

REACTIONS (8)
  - Joint stiffness [Not Recovered/Not Resolved]
  - Arthralgia [Not Recovered/Not Resolved]
  - Drug ineffective [Not Recovered/Not Resolved]
  - Fibromyalgia [Not Recovered/Not Resolved]
  - Insomnia [Not Recovered/Not Resolved]
  - Fatigue [Not Recovered/Not Resolved]
  - Wrong technique in drug usage process [Unknown]
  - Injury associated with device [Unknown]
